FAERS Safety Report 10582975 (Version 1)
Quarter: 2014Q4

REPORT INFORMATION
  Report Type: Spontaneous
  Country: SE (occurrence: SE)
  Receive Date: 20141114
  Receipt Date: 20141114
  Transmission Date: 20150529
  Serious: Yes (Other)
  Sender: FDA-Public Use
  Company Number: SE-ROCHE-1489704

PATIENT
  Age: 68 Year
  Sex: Male

DRUGS (11)
  1. OMEPRAZOLE. [Concomitant]
     Active Substance: OMEPRAZOLE
     Route: 065
  2. XERODENT [Concomitant]
     Route: 065
  3. MINDIAB [Concomitant]
     Active Substance: GLIPIZIDE
     Route: 065
  4. METFORMIN [Concomitant]
     Active Substance: METFORMIN HYDROCHLORIDE
     Route: 065
  5. KLEXANE [Concomitant]
     Active Substance: ENOXAPARIN
     Dosage: 100 MG/ML
     Route: 065
  6. ATORVASTATIN [Concomitant]
     Active Substance: ATORVASTATIN
     Route: 065
  7. XELODA [Suspect]
     Active Substance: CAPECITABINE
     Indication: COLON CANCER
     Dosage: 80 %, CYKEL 1 OCH 2
     Route: 048
     Dates: start: 20140512
  8. XELODA [Suspect]
     Active Substance: CAPECITABINE
     Dosage: 80 %, CYKEL 3
     Route: 048
     Dates: start: 20140619
  9. XARELTO [Concomitant]
     Active Substance: RIVAROXABAN
     Route: 065
  10. AMLODIPINE [Concomitant]
     Active Substance: AMLODIPINE BESYLATE
     Route: 065
  11. LOSARTAN/HCTZ [Concomitant]
     Active Substance: HYDROCHLOROTHIAZIDE\LOSARTAN
     Dosage: 100 MG/12.5 MG
     Route: 065
     Dates: start: 20110411

REACTIONS (2)
  - Erythema [Not Recovered/Not Resolved]
  - Skin disorder [Not Recovered/Not Resolved]

NARRATIVE: CASE EVENT DATE: 20140619
